FAERS Safety Report 6907191-9 (Version None)
Quarter: 2010Q3

REPORT INFORMATION
  Report Type: 
  Country: None (occurrence: None)
  Receive Date: 20100802
  Receipt Date: 20100716
  Transmission Date: 20110219
  Serious: Yes (Hospitalization, Other)
  Sender: FDA-Public Use
  Company Number: 1000015319

PATIENT
  Age: 33 Year
  Sex: Female

DRUGS (4)
  1. CITALOPRAM HYDROBROMIDE [Suspect]
     Dosage: (560 MG,ONCE),ORAL
     Route: 048
     Dates: start: 20100507, end: 20100507
  2. SEREUPIN [Suspect]
     Dosage: (560 MG,ONCE),ORAL
     Route: 048
     Dates: start: 20100507, end: 20100507
  3. ORAP [Suspect]
     Dosage: (112 MG,ONCE)
     Dates: start: 20100507, end: 20100507
  4. DENIBAN [Suspect]
     Dosage: (600 MG,ONCE),ORAL
     Route: 048
     Dates: start: 20100507, end: 20100507

REACTIONS (2)
  - MULTIPLE DRUG OVERDOSE [None]
  - SELF INJURIOUS BEHAVIOUR [None]
